APPROVED DRUG PRODUCT: MIRALUMA
Active Ingredient: TECHNETIUM TC-99M SESTAMIBI KIT
Strength: N/A
Dosage Form/Route: INJECTABLE;INJECTION
Application: N019785 | Product #003
Applicant: LANTHEUS MEDICAL IMAGING INC
Approved: May 23, 1997 | RLD: No | RS: No | Type: DISCN